FAERS Safety Report 9324595 (Version 1)
Quarter: 2013Q2

REPORT INFORMATION
  Report Type: Other
  Country: GB (occurrence: GB)
  Receive Date: 20130603
  Receipt Date: 20130603
  Transmission Date: 20140414
  Serious: Yes (Hospitalization)
  Sender: FDA-Public Use
  Company Number: GB-ACTAVIS-2013-09287

PATIENT
  Age: 27 Year
  Sex: Female
  Weight: 92 kg

DRUGS (9)
  1. IPRATROPIUM (UNKNOWN) (IPRATROPIUM) UNK, UNKUNK [Suspect]
     Indication: ASTHMA
     Dosage: 500 MG, UNKNOWN. NEBULISER
     Route: 055
     Dates: start: 20130429, end: 20130430
  2. ENOXAPARIN [Suspect]
     Indication: PROPHYLAXIS
     Dosage: ABDOMINAL INJECTION.
     Route: 051
     Dates: start: 20130429, end: 20130429
  3. SALBUTAMOL [Concomitant]
     Indication: PRODUCT USED FOR UNKNOWN INDICATION
     Dosage: UNK
     Route: 065
  4. SERETIDE [Concomitant]
     Indication: PRODUCT USED FOR UNKNOWN INDICATION
     Dosage: UNK
     Route: 065
  5. AMITRIPTYLINE [Concomitant]
     Indication: PRODUCT USED FOR UNKNOWN INDICATION
     Dosage: UNK
     Route: 065
  6. FEXOFENADINE [Concomitant]
     Indication: PRODUCT USED FOR UNKNOWN INDICATION
     Dosage: UNK
     Route: 065
  7. FLUTICASONE FUROATE [Concomitant]
     Indication: PRODUCT USED FOR UNKNOWN INDICATION
     Dosage: UNK
     Route: 065
  8. GLUCOSAMINE [Concomitant]
     Indication: PRODUCT USED FOR UNKNOWN INDICATION
     Dosage: UNK
     Route: 065
  9. PARACETAMOL [Concomitant]
     Indication: PRODUCT USED FOR UNKNOWN INDICATION
     Dosage: UNK
     Route: 065

REACTIONS (11)
  - Injection site pain [Recovering/Resolving]
  - Urticaria [Recovered/Resolved]
  - Throat tightness [Recovered/Resolved]
  - Tachycardia [Recovered/Resolved]
  - Injection site mass [Recovering/Resolving]
  - Body temperature increased [Unknown]
  - Dry mouth [Unknown]
  - Rash [Recovered/Resolved]
  - Injection site swelling [Not Recovered/Not Resolved]
  - Skin warm [Unknown]
  - Skin discolouration [Not Recovered/Not Resolved]
